FAERS Safety Report 16768068 (Version 1)
Quarter: 2019Q3

REPORT INFORMATION
  Report Type: Spontaneous
  Country: US (occurrence: US)
  Receive Date: 20190903
  Receipt Date: 20190903
  Transmission Date: 20191005
  Serious: No
  Sender: FDA-Public Use
  Company Number: US-009507513-1909USA000453

PATIENT
  Age: 27 Year
  Sex: Female

DRUGS (1)
  1. NEXPLANON [Suspect]
     Active Substance: ETONOGESTREL
     Dosage: 1 DOSAGE FORM FREQUENCY: 3 YEARS
     Route: 059
     Dates: start: 2016

REACTIONS (4)
  - Complication of device removal [Unknown]
  - Complication associated with device [Unknown]
  - No adverse event [Unknown]
  - Device deployment issue [Unknown]
